FAERS Safety Report 6511662-7 (Version None)
Quarter: 2009Q4

REPORT INFORMATION
  Report Type: 
  Country: None (occurrence: None)
  Receive Date: 20091222
  Receipt Date: 20090708
  Transmission Date: 20100525
  Serious: No
  Sender: FDA-Public Use
  Company Number: US-ASTRAZENECA-2009UW11649

PATIENT
  Age: 88 Year
  Sex: Female
  Weight: 61.2 kg

DRUGS (3)
  1. CRESTOR [Suspect]
     Indication: BLOOD CHOLESTEROL
     Route: 048
     Dates: start: 20090430, end: 20090506
  2. ATENOLOL [Concomitant]
  3. AVANDIA [Concomitant]

REACTIONS (1)
  - MUSCLE SPASMS [None]
